FAERS Safety Report 22276750 (Version 2)
Quarter: 2023Q2

REPORT INFORMATION
  Report Type: Spontaneous
  Country: PY (occurrence: PY)
  Receive Date: 20230503
  Receipt Date: 20230530
  Transmission Date: 20230722
  Serious: Yes (Hospitalization, Other)
  Sender: FDA-Public Use
  Company Number: PY-NOVOPROD-1056139

PATIENT
  Age: 37 Year
  Sex: Male
  Weight: 147 kg

DRUGS (3)
  1. VICTOZA [Suspect]
     Active Substance: LIRAGLUTIDE
     Indication: Diabetes mellitus inadequate control
     Dosage: UNK
     Dates: start: 202211, end: 20230421
  2. VICTOZA [Suspect]
     Active Substance: LIRAGLUTIDE
     Indication: Obesity
  3. FENOFIBRIC ACID [Concomitant]
     Active Substance: FENOFIBRIC ACID
     Indication: Product used for unknown indication
     Dosage: 135 MG

REACTIONS (3)
  - Pancreatic failure [Unknown]
  - Pancreatogenous diabetes [Unknown]
  - Pancreatitis [Not Recovered/Not Resolved]

NARRATIVE: CASE EVENT DATE: 20230401
